FAERS Safety Report 21338688 (Version 2)
Quarter: 2022Q4

REPORT INFORMATION
  Report Type: Spontaneous
  Country: FR (occurrence: FR)
  Receive Date: 20220915
  Receipt Date: 20221001
  Transmission Date: 20230113
  Serious: Yes (Other)
  Sender: FDA-Public Use
  Company Number: FR-TEVA-2022-FR-2072325

PATIENT
  Age: 62 Year
  Sex: Male

DRUGS (14)
  1. EVEROLIMUS [Interacting]
     Active Substance: EVEROLIMUS
     Indication: Immunosuppressant drug therapy
     Dosage: 1.5 MILLIGRAM DAILY;
     Route: 065
     Dates: start: 2013
  2. TACROLIMUS [Interacting]
     Active Substance: TACROLIMUS
     Indication: Immunosuppressant drug therapy
     Route: 065
     Dates: start: 201209
  3. SOTORASIB [Interacting]
     Active Substance: SOTORASIB
     Indication: K-ras gene mutation
     Dosage: 960 MILLIGRAM DAILY;
     Route: 065
     Dates: start: 20211019
  4. SOTORASIB [Interacting]
     Active Substance: SOTORASIB
     Indication: Lung adenocarcinoma
  5. MYCOPHENOLATE MOFETIL [Concomitant]
     Active Substance: MYCOPHENOLATE MOFETIL
     Indication: Immunosuppressant drug therapy
     Route: 065
     Dates: start: 201209
  6. PREDNISOLONE [Concomitant]
     Active Substance: PREDNISOLONE
     Indication: Immunosuppressant drug therapy
     Route: 065
     Dates: start: 201209
  7. RITUXIMAB [Concomitant]
     Active Substance: RITUXIMAB
     Indication: Transplant rejection
     Route: 065
     Dates: start: 201307
  8. RITUXIMAB [Concomitant]
     Active Substance: RITUXIMAB
     Indication: Transplant rejection
  9. IMMUNE GLOBULIN NOS [Concomitant]
     Active Substance: IMMUNE GLOBULIN NOS
     Indication: Transplant rejection
     Route: 042
     Dates: start: 201307
  10. IMMUNE GLOBULIN NOS [Concomitant]
     Active Substance: IMMUNE GLOBULIN NOS
     Indication: Transplant rejection
  11. CARBOPLATIN [Concomitant]
     Active Substance: CARBOPLATIN
     Indication: K-ras gene mutation
     Dosage: AS A PART OF CARBOPLATIN AND PACLITAXEL REGIMEN
     Route: 065
     Dates: start: 2020, end: 202106
  12. CARBOPLATIN [Concomitant]
     Active Substance: CARBOPLATIN
     Indication: Lung adenocarcinoma
  13. PACLITAXEL [Concomitant]
     Active Substance: PACLITAXEL
     Indication: K-ras gene mutation
     Dosage: AS A PART OF CARBOPLATIN AND PACLITAXEL
     Route: 065
     Dates: start: 2020, end: 202106
  14. PACLITAXEL [Concomitant]
     Active Substance: PACLITAXEL
     Indication: Lung adenocarcinoma

REACTIONS (6)
  - Renal impairment [Recovering/Resolving]
  - Asthenia [Unknown]
  - Dyspnoea [Unknown]
  - Oedema peripheral [Unknown]
  - Drug interaction [Unknown]
  - Immunosuppressant drug level decreased [Unknown]

NARRATIVE: CASE EVENT DATE: 20211214
